FAERS Safety Report 7627211-6 (Version None)
Quarter: 2011Q3

REPORT INFORMATION
  Report Type: 
  Country: None (occurrence: None)
  Receive Date: 20110714
  Receipt Date: 20110622
  Transmission Date: 20111222
  Serious: Yes (Other)
  Sender: FDA-Public Use
  Company Number: 2135225-2011-00066

PATIENT
  Sex: Male

DRUGS (1)
  1. AETOXISCLEROL 2% (40MG/2ML) [Suspect]
     Indication: SCLEROTHERAPY
     Dosage: 1 ML (2 INJ./ YEAR),

REACTIONS (3)
  - VENOUS INSUFFICIENCY [None]
  - CONDITION AGGRAVATED [None]
  - MORPHOEA [None]
